FAERS Safety Report 6875739-9 (Version None)
Quarter: 2010Q2

REPORT INFORMATION
  Report Type: 
  Country: None (occurrence: None)
  Receive Date: 20100616
  Receipt Date: 20100413
  Transmission Date: 20101027
  Serious: Yes (Other)
  Sender: FDA-Public Use
  Company Number: DSA_42936_2010

PATIENT
  Sex: Male

DRUGS (7)
  1. XENAZINE [Suspect]
     Indication: HUNTINGTON'S CHOREA
     Dosage: (25 MG BID ORAL)
     Route: 048
     Dates: start: 20100201
  2. EFFEXOR [Concomitant]
  3. LIPITOR [Concomitant]
  4. INDERAL [Concomitant]
  5. PREVACID [Concomitant]
  6. FLOMAX /01280302/ [Concomitant]
  7. ABILIFY [Concomitant]

REACTIONS (2)
  - DEPRESSION [None]
  - SUICIDAL IDEATION [None]
